FAERS Safety Report 8449917-1 (Version None)
Quarter: 2012Q2

REPORT INFORMATION
  Report Type: 
  Country: None (occurrence: None)
  Receive Date: 20120620
  Receipt Date: 20120614
  Transmission Date: 20120825
  Serious: Yes (Other)
  Sender: FDA-Public Use
  Company Number: PHEH2011US00475

PATIENT
  Sex: Female

DRUGS (10)
  1. ZOMETA [Suspect]
     Dosage: 4 MG, Q2MO OVER FIFTY MINUTES EVERY TWO MONTHS
     Dates: start: 20040101, end: 20080101
  2. CLINDAMYCIN [Concomitant]
     Dosage: 300 MG
  3. METRONIDAZOLE [Concomitant]
     Dosage: 500 MG
  4. SYMBICORT [Concomitant]
  5. CALCITRIOL [Concomitant]
  6. ESTRING [Concomitant]
     Dosage: 2 MG, Q3MO
  7. ETHAMBUTOL HYDROCHLORIDE [Concomitant]
     Dosage: 400 MG,
  8. SYNTHROID [Concomitant]
     Dosage: 1 MG,
  9. XOPENEX HFA [Concomitant]
  10. AZITHROMYCIN [Concomitant]
     Dosage: 250 MG,

REACTIONS (28)
  - OSTEONECROSIS OF JAW [None]
  - INFECTION [None]
  - EMOTIONAL DISTRESS [None]
  - EXPOSED BONE IN JAW [None]
  - INJURY [None]
  - PRIMARY SEQUESTRUM [None]
  - BREAST CANCER [None]
  - INTERVERTEBRAL DISC DEGENERATION [None]
  - INTERVERTEBRAL DISC DISORDER [None]
  - OSTEOPENIA [None]
  - CHRONIC OBSTRUCTIVE PULMONARY DISEASE [None]
  - PAIN [None]
  - DYSPNOEA [None]
  - ANXIETY [None]
  - THYROID DISORDER [None]
  - PLEURAL EFFUSION [None]
  - LUNG NEOPLASM [None]
  - OSTEOPOROSIS [None]
  - BACK PAIN [None]
  - ROAD TRAFFIC ACCIDENT [None]
  - HYPOTENSION [None]
  - SCOLIOSIS [None]
  - PELVIC PAIN [None]
  - BRONCHIECTASIS [None]
  - MYCOBACTERIUM AVIUM COMPLEX INFECTION [None]
  - DEFORMITY [None]
  - PHYSICAL DISABILITY [None]
  - BONE LESION [None]
